FAERS Safety Report 5119311-X (Version None)
Quarter: 2006Q3

REPORT INFORMATION
  Report Type: 
  Country: None (occurrence: None)
  Receive Date: 20060929
  Receipt Date: 20060921
  Transmission Date: 20061208
  Serious: Yes (Other)
  Sender: FDA-Public Use
  Company Number: US-2006-028294

PATIENT
  Age: 28 Year
  Sex: Female

DRUGS (1)
  1. YASMIN [Suspect]
     Indication: ORAL CONTRACEPTION
     Dosage: 1 TAB(S), 1X/DAY, ORAL
     Route: 048

REACTIONS (6)
  - BREAST TENDERNESS [None]
  - DEPERSONALISATION [None]
  - DEPRESSED MOOD [None]
  - INSOMNIA [None]
  - LIBIDO DECREASED [None]
  - NIGHTMARE [None]
